FAERS Safety Report 24932813 (Version 1)
Quarter: 2025Q1

REPORT INFORMATION
  Report Type: Spontaneous
  Country: DE (occurrence: DE)
  Receive Date: 20250205
  Receipt Date: 20250205
  Transmission Date: 20250408
  Serious: Yes (Other)
  Sender: TAKEDA
  Company Number: DE-TAKEDA-2024TUS081228

PATIENT
  Age: 29 Year
  Sex: Male
  Weight: 77 kg

DRUGS (6)
  1. LISDEXAMFETAMINE DIMESYLATE [Suspect]
     Active Substance: LISDEXAMFETAMINE DIMESYLATE
     Indication: Product used for unknown indication
     Dosage: 70 MILLIGRAM, QD
  2. LISDEXAMFETAMINE DIMESYLATE [Suspect]
     Active Substance: LISDEXAMFETAMINE DIMESYLATE
     Indication: Attention deficit hyperactivity disorder
  3. LISDEXAMFETAMINE DIMESYLATE [Suspect]
     Active Substance: LISDEXAMFETAMINE DIMESYLATE
  4. METHYLPHENIDATE [Concomitant]
     Active Substance: METHYLPHENIDATE
  5. BUPROPION [Concomitant]
     Active Substance: BUPROPION
     Indication: Depression
  6. BUPROPION [Concomitant]
     Active Substance: BUPROPION
     Dosage: 300 MILLIGRAM, QD

REACTIONS (4)
  - Autism spectrum disorder [Unknown]
  - Drug ineffective [Unknown]
  - Off label use [Unknown]
  - Dry mouth [Unknown]
